FAERS Safety Report 21171025 (Version 1)
Quarter: 2022Q3

REPORT INFORMATION
  Report Type: Spontaneous
  Country: US (occurrence: US)
  Receive Date: 20220804
  Receipt Date: 20220804
  Transmission Date: 20221027
  Serious: Yes (Hospitalization)
  Sender: FDA-Public Use
  Company Number: US-STRIDES ARCOLAB LIMITED-2022SP009122

PATIENT
  Age: 60 Year
  Sex: Female

DRUGS (8)
  1. FLUCYTOSINE [Suspect]
     Active Substance: FLUCYTOSINE
     Indication: Candida infection
     Dosage: 1500 MILLIGRAM PER DAY (25 MG/KG; INITIAL DOSE)
     Route: 048
  2. FLUCYTOSINE [Suspect]
     Active Substance: FLUCYTOSINE
     Dosage: 1250 MILLIGRAM PER DAY (21MG/KG FROM DAY 155 POST IHD)
     Route: 048
  3. FLUCYTOSINE [Suspect]
     Active Substance: FLUCYTOSINE
     Dosage: 1000 MILLIGRAM PER DAY (17 MG/KG FROM DAY 189 POST IHD)
     Route: 048
  4. FLUCYTOSINE [Suspect]
     Active Substance: FLUCYTOSINE
     Dosage: UNK PER DAY (1250 MG POST-IHD (21 MG/KG) ON IHD DAYS AND 1000 MG (17 MG/KG) IN THE EVENINGS ON ALL O
     Route: 048
  5. FLUCYTOSINE [Suspect]
     Active Substance: FLUCYTOSINE
     Dosage: 1250 MILLIGRAM EVERY OTHER DAY
     Route: 048
  6. AMPHOTERICIN B [Concomitant]
     Active Substance: AMPHOTERICIN B
     Indication: Candida infection
     Dosage: UNK
     Route: 065
  7. FLUCONAZOLE [Concomitant]
     Active Substance: FLUCONAZOLE
     Indication: Candida infection
     Dosage: 200 MILLIGRAM, PER DAY
     Route: 048
  8. FLUCONAZOLE [Concomitant]
     Active Substance: FLUCONAZOLE
     Dosage: 300 MILLIGRAM, PER DAY (DOSE OF WAS INCREASED)
     Route: 048

REACTIONS (1)
  - Colitis [Unknown]
